FAERS Safety Report 4976030-8 (Version None)
Quarter: 2006Q2

REPORT INFORMATION
  Report Type: 
  Country: None (occurrence: None)
  Receive Date: 20060411
  Receipt Date: 20060329
  Transmission Date: 20061013
  Serious: Yes (Hospitalization, Other)
  Sender: FDA-Public Use
  Company Number: 2006043719

PATIENT
  Sex: Male
  Weight: 104.3273 kg

DRUGS (4)
  1. VIAGRA [Suspect]
     Indication: ERECTILE DYSFUNCTION
     Dosage: (50 MG, UNKNOWN)
  2. FENTANYL [Concomitant]
  3. CYMBALTA [Concomitant]
  4. VITAMINS [Concomitant]

REACTIONS (7)
  - BACK DISORDER [None]
  - COLON CANCER [None]
  - DIFFICULTY IN WALKING [None]
  - MONOPLEGIA [None]
  - NERVE COMPRESSION [None]
  - SPINAL DECOMPRESSION [None]
  - THERAPY NON-RESPONDER [None]
